FAERS Safety Report 9855514 (Version 1)
Quarter: 2013Q4

REPORT INFORMATION
  Report Type: Spontaneous
  Country: US (occurrence: None)
  Receive Date: 20131226
  Receipt Date: 20131226
  Transmission Date: 20140711
  Serious: Yes (Other)
  Sender: FDA-Public Use
  Company Number: PHEH2012US022417

PATIENT
  Sex: Female

DRUGS (6)
  1. SANDOSTATIN LAR DEPOT (OCTREOTIDE WITH POLY(D L-LACTIDE-CO-GLYCOLIDE)) UNKNOWN [Suspect]
     Indication: ACROMEGALY
  2. SOMAVERT (PEGVISOMANT) [Concomitant]
  3. MOTRIN (IBUPROFEN) [Concomitant]
  4. LIPITOR (ATORVASTATIN CALCIUM) [Concomitant]
  5. VITAMIN B12 (CYANOCOBALAMIN) [Concomitant]
  6. FEMARA (LETROZOLE) [Concomitant]

REACTIONS (5)
  - Neoplasm [None]
  - Angina pectoris [None]
  - Musculoskeletal pain [None]
  - Pain in extremity [None]
  - Pain in jaw [None]
